FAERS Safety Report 18884492 (Version 5)
Quarter: 2022Q2

REPORT INFORMATION
  Report Type: Report from Study
  Country: US (occurrence: US)
  Receive Date: 20210212
  Receipt Date: 20220429
  Transmission Date: 20220721
  Serious: No
  Sender: FDA-Public Use
  Company Number: US-ACADIA PHARMACEUTICALS INC.-ACA-2021-PIM-000186

PATIENT
  Sex: Male

DRUGS (1)
  1. NUPLAZID [Suspect]
     Active Substance: PIMAVANSERIN TARTRATE
     Indication: Parkinson^s disease
     Dosage: 34 MILLIGRAM, QD
     Route: 048
     Dates: start: 20201110

REACTIONS (6)
  - Anxiety [Not Recovered/Not Resolved]
  - Gait disturbance [Unknown]
  - Peripheral swelling [Unknown]
  - Hallucination [Not Recovered/Not Resolved]
  - Gait disturbance [Not Recovered/Not Resolved]
  - Peripheral swelling [Not Recovered/Not Resolved]
